FAERS Safety Report 25943619 (Version 1)
Quarter: 2025Q4

REPORT INFORMATION
  Report Type: Other
  Country: EU (occurrence: EU)
  Receive Date: 20251021
  Receipt Date: 20251021
  Transmission Date: 20260118
  Serious: Yes (Other)
  Sender: GLENMARK
  Company Number: None

PATIENT
  Age: 68 Year
  Sex: Female

DRUGS (1)
  1. LINEZOLID [Suspect]
     Active Substance: LINEZOLID
     Indication: Infection
     Dosage: UNK
     Route: 065
     Dates: start: 201911, end: 202002

REACTIONS (2)
  - Cataract [Unknown]
  - Myopia [Unknown]

NARRATIVE: CASE EVENT DATE: 20191201
